FAERS Safety Report 25129757 (Version 2)
Quarter: 2025Q2

REPORT INFORMATION
  Report Type: Spontaneous
  Country: US (occurrence: US)
  Receive Date: 20250327
  Receipt Date: 20250403
  Transmission Date: 20250716
  Serious: No
  Sender: PFIZER
  Company Number: US-PFIZER INC-202500066392

PATIENT
  Age: 60 Year
  Sex: Female

DRUGS (1)
  1. XELJANZ [Suspect]
     Active Substance: TOFACITINIB CITRATE

REACTIONS (8)
  - Hypoaesthesia [Unknown]
  - Pain in extremity [Unknown]
  - Hand deformity [Unknown]
  - Fatigue [Unknown]
  - Skin fissures [Unknown]
  - Pain in extremity [Unknown]
  - Crying [Unknown]
  - Hypoaesthesia [Unknown]
